FAERS Safety Report 11237112 (Version 2)
Quarter: 2020Q3

REPORT INFORMATION
  Report Type: Report from Study
  Country: JP (occurrence: JP)
  Receive Date: 20150703
  Receipt Date: 20150706
  Transmission Date: 20201105
  Serious: Yes (Other)
  Sender: FDA-Public Use
  Company Number: JP-JNJFOC-20150615743

PATIENT
  Age: 42 Year
  Sex: Male
  Weight: 49.2 kg

DRUGS (46)
  1. MUCOSTA [Concomitant]
     Active Substance: REBAMIPIDE
     Route: 048
     Dates: start: 20131214, end: 20131227
  2. SEKIJUJI ALBUMIN [Concomitant]
     Dosage: 10G/50ML
     Route: 042
     Dates: start: 20131211
  3. SEKIJUJI ALBUMIN [Concomitant]
     Route: 042
     Dates: start: 20131220, end: 20131221
  4. PENTAGIN [Concomitant]
     Active Substance: PENTAZOCINE HYDROCHLORIDE
     Route: 030
     Dates: start: 20131211, end: 20131211
  5. LOXOPROFEN SODIUM [Concomitant]
     Active Substance: LOXOPROFEN SODIUM
     Route: 048
     Dates: start: 20131209
  6. LOXOPROFEN SODIUM [Concomitant]
     Active Substance: LOXOPROFEN SODIUM
     Route: 048
     Dates: end: 20140127
  7. PENTAZOCINE [Concomitant]
     Active Substance: PENTAZOCINE
     Route: 030
     Dates: start: 20131127
  8. PENTAZOCINE [Concomitant]
     Active Substance: PENTAZOCINE
     Route: 030
     Dates: start: 20131215, end: 20131216
  9. ELENOPA NR.2 [Concomitant]
     Route: 065
  10. HYDROXYZINE PAMOATE. [Concomitant]
     Active Substance: HYDROXYZINE PAMOATE
     Route: 030
     Dates: start: 20131127
  11. FAMOTIDINE. [Concomitant]
     Active Substance: FAMOTIDINE
     Indication: CROHN^S DISEASE
     Route: 048
     Dates: start: 20130625, end: 20140123
  12. TOCOFEROL [Concomitant]
     Route: 065
  13. FLUNITRAZEPAM [Concomitant]
     Active Substance: FLUNITRAZEPAM
     Indication: INSOMNIA
     Route: 048
  14. GABAPENTIN. [Concomitant]
     Active Substance: GABAPENTIN
     Indication: CROHN^S DISEASE
     Route: 048
  15. USTEKINUMAB [Suspect]
     Active Substance: USTEKINUMAB
     Route: 065
  16. CEFTRIAXONE SODIUM. [Concomitant]
     Active Substance: CEFTRIAXONE SODIUM
     Route: 042
     Dates: start: 20131211, end: 20131217
  17. HYDROXYZINE PAMOATE. [Concomitant]
     Active Substance: HYDROXYZINE PAMOATE
     Route: 030
     Dates: start: 20131215, end: 20131216
  18. PENTAZOCINE [Concomitant]
     Active Substance: PENTAZOCINE
     Route: 030
     Dates: start: 20131206, end: 20131219
  19. ENSURE [Concomitant]
     Active Substance: AMINO ACIDS\DEXTROSE\ELECTROLYTES NOS\SOYBEAN OIL\VITAMINS
     Dosage: 500KCAL/DAY
     Route: 048
     Dates: start: 20131007, end: 20140104
  20. ATARAX?P [Concomitant]
     Active Substance: HYDROXYZINE HYDROCHLORIDE
     Route: 030
     Dates: start: 20131211, end: 20131211
  21. HYDROXYZINE PAMOATE. [Concomitant]
     Active Substance: HYDROXYZINE PAMOATE
     Route: 030
     Dates: start: 20131219, end: 20131221
  22. ELNEOPA NO 1 [Concomitant]
     Route: 042
     Dates: start: 20131209, end: 20131211
  23. INTRALIPOS [Concomitant]
     Active Substance: SOYBEAN OIL
     Route: 042
     Dates: start: 20131210, end: 20131211
  24. ASPARA (ASPARTATE POTASSIUM, MAGNESIUM ASPARTATE) [Concomitant]
     Indication: CROHN^S DISEASE
     Route: 048
  25. MOHRUS [Concomitant]
     Active Substance: KETOPROFEN
     Indication: CROHN^S DISEASE
     Route: 062
  26. CIPROXACIN [Concomitant]
     Indication: PRODUCT USED FOR UNKNOWN INDICATION
     Route: 048
     Dates: start: 20131206, end: 20131208
  27. LOXOPROFEN SODIUM [Concomitant]
     Active Substance: LOXOPROFEN SODIUM
     Route: 048
     Dates: start: 20131211
  28. CARBOCISTEINE [Concomitant]
     Active Substance: CARBOCYSTEINE
     Route: 048
     Dates: start: 20131219, end: 20131221
  29. PENTAZOCINE [Concomitant]
     Active Substance: PENTAZOCINE
     Route: 030
     Dates: start: 20131206, end: 20131219
  30. HYDROXYZINE PAMOATE. [Concomitant]
     Active Substance: HYDROXYZINE PAMOATE
     Route: 030
     Dates: start: 20131129
  31. BIFIDOBACTERIUM [Concomitant]
     Active Substance: BIFIDOBACTERIUM LONGUM
     Indication: CROHN^S DISEASE
     Route: 048
  32. MUCOSTA [Concomitant]
     Active Substance: REBAMIPIDE
     Route: 048
     Dates: start: 20131209
  33. BFLUID [Concomitant]
     Active Substance: AMINO ACIDS\DEXTROSE\ELECTROLYTES NOS\VITAMINS
     Route: 042
     Dates: start: 20131209, end: 20131217
  34. HYDROXYZINE PAMOATE. [Concomitant]
     Active Substance: HYDROXYZINE PAMOATE
     Route: 030
     Dates: start: 20131223
  35. OMNIPAQUE [Concomitant]
     Active Substance: IOHEXOL
     Route: 042
     Dates: start: 20131206, end: 20131206
  36. REBAMIPIDE [Concomitant]
     Active Substance: REBAMIPIDE
     Indication: CROHN^S DISEASE
     Route: 048
     Dates: end: 20140127
  37. MESALAZINE [Concomitant]
     Active Substance: MESALAMINE
     Indication: CROHN^S DISEASE
     Route: 048
  38. USTEKINUMAB [Suspect]
     Active Substance: USTEKINUMAB
     Indication: CROHN^S DISEASE
     Route: 065
     Dates: start: 20131003, end: 20131129
  39. SEKIJUJI ALBUMIN [Concomitant]
     Route: 042
     Dates: start: 20131217
  40. PENTAZOCINE [Concomitant]
     Active Substance: PENTAZOCINE
     Route: 030
     Dates: start: 20131129
  41. EPERISONE HYDROCHLORIDE [Concomitant]
     Active Substance: EPERISONE HYDROCHLORIDE
     Indication: CROHN^S DISEASE
     Route: 048
  42. ZOLPIDEM TARTRATE. [Concomitant]
     Active Substance: ZOLPIDEM TARTRATE
     Indication: INSOMNIA
     Route: 048
  43. LANZOPRAZOLE [Concomitant]
     Active Substance: LANSOPRAZOLE
     Route: 065
     Dates: start: 20131212
  44. PENTAZOCINE [Concomitant]
     Active Substance: PENTAZOCINE
     Route: 030
     Dates: start: 20131129
  45. FERROMIA [Concomitant]
     Active Substance: SODIUM FERROUS CITRATE
     Indication: CROHN^S DISEASE
     Route: 048
  46. LIMAPROST ALFADEX [Concomitant]
     Active Substance: LIMAPROST
     Route: 048

REACTIONS (1)
  - Sepsis [Recovered/Resolved]

NARRATIVE: CASE EVENT DATE: 20131217
